FAERS Safety Report 11741233 (Version 2)
Quarter: 2015Q4

REPORT INFORMATION
  Report Type: Spontaneous
  Country: US (occurrence: US)
  Receive Date: 20151116
  Receipt Date: 20151221
  Transmission Date: 20160304
  Serious: Yes (Death, Other)
  Sender: FDA-Public Use
  Company Number: US-ROCHE-1659650

PATIENT
  Age: 91 Year
  Sex: Male

DRUGS (1)
  1. RITUXAN [Suspect]
     Active Substance: RITUXIMAB
     Indication: LYMPHOMA
     Route: 041
     Dates: start: 20150821, end: 20150821

REACTIONS (8)
  - Death [Fatal]
  - Abasia [Fatal]
  - Depressed level of consciousness [Fatal]
  - Vein disorder [Fatal]
  - Hallucination [Fatal]
  - Hypophagia [Fatal]
  - Abdominal distension [Fatal]
  - Speech disorder [Unknown]

NARRATIVE: CASE EVENT DATE: 20150826
